FAERS Safety Report 4539763-3 (Version None)
Quarter: 2004Q4

REPORT INFORMATION
  Report Type: 
  Country: None (occurrence: None)
  Receive Date: 20041222
  Receipt Date: 20041213
  Transmission Date: 20050328
  Serious: Yes (Other)
  Sender: FDA-Public Use
  Company Number: 2004110598

PATIENT
  Sex: Female

DRUGS (8)
  1. LIPITOR [Suspect]
     Indication: BLOOD CHOLESTEROL
  2. ATENOLOL [Concomitant]
  3. LEVOTHYROXINE SODIUM [Concomitant]
  4. SOTALOL HCL [Concomitant]
  5. ESTRADIOL [Concomitant]
  6. PANTOPRAZOLE (PANTOPRAZOLE) [Concomitant]
  7. QUETIAPINE FUMARATE (QUETIAPINE FUMARATE) [Concomitant]
  8. COMBIVENT [Concomitant]

REACTIONS (13)
  - ABASIA [None]
  - AMNESIA [None]
  - ANGER [None]
  - BALANCE DISORDER [None]
  - DIFFICULTY IN WALKING [None]
  - DYSPHAGIA [None]
  - FALL [None]
  - FEELING ABNORMAL [None]
  - ILL-DEFINED DISORDER [None]
  - MEMORY IMPAIRMENT [None]
  - MYALGIA [None]
  - PAIN [None]
  - WEIGHT DECREASED [None]
